FAERS Safety Report 4470536-6 (Version None)
Quarter: 2004Q4

REPORT INFORMATION
  Report Type: 
  Country: None (occurrence: None)
  Receive Date: 20041001
  Receipt Date: 20040916
  Transmission Date: 20050328
  Serious: Yes (Hospitalization, Other)
  Sender: FDA-Public Use
  Company Number: CIP04002076

PATIENT
  Age: 34 Year
  Sex: Male

DRUGS (1)
  1. MESALAMINE [Suspect]
     Indication: CROHN'S DISEASE
     Dosage: ORAL
     Route: 048
     Dates: start: 19910101

REACTIONS (3)
  - CALCINOSIS [None]
  - FOREIGN BODY TRAUMA [None]
  - INTESTINAL OBSTRUCTION [None]
